FAERS Safety Report 4731229-0 (Version None)
Quarter: 2005Q3

REPORT INFORMATION
  Report Type: 
  Country: None (occurrence: None)
  Receive Date: 20050802
  Receipt Date: 20050722
  Transmission Date: 20060218
  Serious: Yes (Other)
  Sender: FDA-Public Use
  Company Number: US-JNJFOC-20050704791

PATIENT
  Sex: Male

DRUGS (23)
  1. INFLIXIMAB [Suspect]
     Indication: RHEUMATOID ARTHRITIS
     Route: 042
  2. ASPIRIN [Concomitant]
  3. CALCIUM GLUCONATE [Concomitant]
  4. FOLIC ACID [Concomitant]
  5. IMDUR [Concomitant]
  6. LISINOPRIL [Concomitant]
  7. METHOTREXATE [Concomitant]
  8. OCUVITE [Concomitant]
  9. OCUVITE [Concomitant]
  10. OCUVITE [Concomitant]
  11. PREDNISONE [Concomitant]
  12. SERTRALINE HCL [Concomitant]
  13. TYLENOL (CAPLET) [Concomitant]
  14. ZOCOR [Concomitant]
  15. KLONAPIN [Concomitant]
  16. MULTI-VITAMIN [Concomitant]
  17. MULTI-VITAMIN [Concomitant]
  18. MULTI-VITAMIN [Concomitant]
  19. MULTI-VITAMIN [Concomitant]
  20. MULTI-VITAMIN [Concomitant]
  21. MULTI-VITAMIN [Concomitant]
  22. MULTI-VITAMIN [Concomitant]
  23. MULTI-VITAMIN [Concomitant]

REACTIONS (1)
  - MALIGNANT MELANOMA [None]
